FAERS Safety Report 11881191 (Version 1)
Quarter: 2015Q4

REPORT INFORMATION
  Report Type: Report from Study
  Country: GB (occurrence: GB)
  Receive Date: 20151231
  Receipt Date: 20151231
  Transmission Date: 20160305
  Serious: Yes (Other)
  Sender: FDA-Public Use
  Company Number: GB-ROCHE-1686130

PATIENT
  Age: 58 Year
  Sex: Female

DRUGS (7)
  1. ROACTEMRA [Suspect]
     Active Substance: TOCILIZUMAB
     Dosage: BACK TO INFUSION
     Route: 042
  2. SULFASALAZINE. [Concomitant]
     Active Substance: SULFASALAZINE
     Indication: RHEUMATOID ARTHRITIS
     Dosage: 2P
     Route: 048
     Dates: start: 20100107
  3. METHOTREXATE [Suspect]
     Active Substance: METHOTREXATE
     Indication: RHEUMATOID ARTHRITIS
     Dosage: 20 MG /KG
     Route: 048
     Dates: start: 20100107
  4. ROACTEMRA [Suspect]
     Active Substance: TOCILIZUMAB
     Indication: RHEUMATOID ARTHRITIS
     Dosage: DATE OF RECENT DOSE:14/JAN/2015
     Route: 042
     Dates: start: 20120727
  5. ROACTEMRA [Suspect]
     Active Substance: TOCILIZUMAB
     Route: 042
  6. ROACTEMRA [Suspect]
     Active Substance: TOCILIZUMAB
     Route: 042
  7. ROACTEMRA [Suspect]
     Active Substance: TOCILIZUMAB
     Indication: RHEUMATOID ARTHRITIS
     Route: 058
     Dates: start: 20150107

REACTIONS (11)
  - Headache [Unknown]
  - Hyperhidrosis [Unknown]
  - Swelling face [Unknown]
  - Hot flush [Unknown]
  - Glossodynia [Unknown]
  - Mouth ulceration [Recovered/Resolved]
  - Tremor [Unknown]
  - Feeling abnormal [Unknown]
  - Disease progression [Unknown]
  - Chills [Unknown]
  - Migraine [Unknown]

NARRATIVE: CASE EVENT DATE: 20121005
